FAERS Safety Report 20747500 (Version 2)
Quarter: 2022Q2

REPORT INFORMATION
  Report Type: Spontaneous
  Country: US (occurrence: US)
  Receive Date: 20220425
  Receipt Date: 20220616
  Transmission Date: 20220720
  Serious: No
  Sender: FDA-Public Use
  Company Number: US-SA-SAC20220420001788

PATIENT
  Age: 70 Year
  Sex: Female
  Weight: 81 kg

DRUGS (3)
  1. CERDELGA [Suspect]
     Active Substance: ELIGLUSTAT
     Indication: Gaucher^s disease
     Dosage: 84 MG, BID
     Route: 048
     Dates: start: 20200821
  2. CODEINE [Concomitant]
     Active Substance: CODEINE
  3. CODEINE PHOSPHATE [Concomitant]
     Active Substance: CODEINE PHOSPHATE
     Dosage: UNK

REACTIONS (3)
  - Arthropod bite [Unknown]
  - Intentional dose omission [Unknown]
  - Product use complaint [Unknown]
